FAERS Safety Report 6662548-9 (Version None)
Quarter: 2010Q1

REPORT INFORMATION
  Report Type: 
  Country: None (occurrence: None)
  Receive Date: 20100329
  Receipt Date: 20100323
  Transmission Date: 20100710
  Serious: Yes (Hospitalization)
  Sender: FDA-Public Use
  Company Number: 2010SP015495

PATIENT
  Age: 85 Year
  Sex: Female
  Weight: 30 kg

DRUGS (5)
  1. REMERON [Suspect]
     Indication: DEPRESSION
     Dosage: 15 MG; QD; PO
     Route: 048
     Dates: start: 20091107
  2. DIOVAN [Concomitant]
  3. SELARA (EPLERENONE) [Concomitant]
  4. CONIEL [Concomitant]
  5. PARIET [Concomitant]

REACTIONS (1)
  - CARDIAC FAILURE CONGESTIVE [None]
